FAERS Safety Report 7949199-0 (Version None)
Quarter: 2011Q4

REPORT INFORMATION
  Report Type: 
  Country: None (occurrence: None)
  Receive Date: 20111129
  Receipt Date: 20111129
  Transmission Date: 20120403
  Serious: No
  Sender: FDA-Public Use
  Company Number: None

PATIENT
  Age: 59 Year
  Sex: Male

DRUGS (2)
  1. MULTI-VITAMIN [Suspect]
     Dates: start: 20050101, end: 20100105
  2. ZIPFIZ ENERGY EXTRACT (MULTIPLE HERBS + VITAMINS) [Suspect]
     Dates: start: 20090801, end: 20091001

REACTIONS (5)
  - LIVER INJURY [None]
  - AUTOIMMUNE HEPATITIS [None]
  - HEPATIC NECROSIS [None]
  - TUBERCULIN TEST POSITIVE [None]
  - BILIARY DILATATION [None]
